FAERS Safety Report 26168838 (Version 1)
Quarter: 2025Q4

REPORT INFORMATION
  Report Type: Spontaneous
  Country: US (occurrence: US)
  Receive Date: 20251217
  Receipt Date: 20251217
  Transmission Date: 20260118
  Serious: No
  Sender: AMNEAL
  Company Number: US-AMNEAL PHARMACEUTICALS-2025-AMRX-03314

PATIENT

DRUGS (1)
  1. LISDEXAMFETAMINE DIMESYLATE [Suspect]
     Active Substance: LISDEXAMFETAMINE DIMESYLATE
     Indication: Product used for unknown indication
     Dosage: 70 MILLIGRAM
     Route: 048

REACTIONS (10)
  - Myalgia [Unknown]
  - Tongue thrust [Unknown]
  - Pain in extremity [Unknown]
  - Bruxism [Unknown]
  - Anxiety [Unknown]
  - Irritability [Unknown]
  - Raynaud^s phenomenon [Unknown]
  - Dry mouth [Unknown]
  - Drug effect less than expected [Unknown]
  - Product quality issue [Unknown]
